FAERS Safety Report 21267045 (Version 2)
Quarter: 2022Q3

REPORT INFORMATION
  Report Type: Spontaneous
  Country: JP (occurrence: JP)
  Receive Date: 20220829
  Receipt Date: 20220831
  Transmission Date: 20221027
  Serious: Yes (Hospitalization, Other)
  Sender: FDA-Public Use
  Company Number: JP-PFIZER INC-202201052338

PATIENT
  Age: 78 Year
  Sex: Male

DRUGS (6)
  1. NIFEDIPINE [Suspect]
     Active Substance: NIFEDIPINE
     Indication: Prinzmetal angina
     Dosage: 40 MG, DAILY
  2. NIFEDIPINE [Suspect]
     Active Substance: NIFEDIPINE
     Dosage: 80 MG, 1X/DAY(GRADUALLY TITRATED)
  3. AMLODIPINE BESYLATE [Suspect]
     Active Substance: AMLODIPINE BESYLATE
     Indication: Prinzmetal angina
     Dosage: 5 MG, DAILY
  4. DILTIAZEM [Suspect]
     Active Substance: DILTIAZEM
     Indication: Prinzmetal angina
     Dosage: 200 MG, 1X/DAY
  5. NITROGLYCERIN [Concomitant]
     Active Substance: NITROGLYCERIN
     Indication: Prinzmetal angina
     Dosage: 27 MG, 1X/DAY(PER 24HRS) PATCH
     Route: 062
  6. NITROGLYCERIN [Concomitant]
     Active Substance: NITROGLYCERIN
     Indication: Stenosis
     Dosage: UNK(INJECTION)

REACTIONS (1)
  - Oedema peripheral [Recovered/Resolved]
